FAERS Safety Report 5308581-0 (Version None)
Quarter: 2007Q2

REPORT INFORMATION
  Report Type: 
  Country: None (occurrence: None)
  Receive Date: 20070423
  Receipt Date: 20070423
  Transmission Date: 20071010
  Serious: Yes (Other)
  Sender: FDA-Public Use
  Company Number: None

PATIENT
  Age: 30 Year
  Sex: Female
  Weight: 58.0604 kg

DRUGS (1)
  1. KENALOG [Suspect]
     Indication: MUSCLE TIGHTNESS
     Dosage: 2 INJECTIONS
     Dates: start: 20070315, end: 20070315

REACTIONS (2)
  - MENORRHAGIA [None]
  - MIGRAINE [None]
